FAERS Safety Report 5816688-4 (Version None)
Quarter: 2008Q3

REPORT INFORMATION
  Report Type: 
  Country: None (occurrence: None)
  Receive Date: 20080721
  Receipt Date: 20080220
  Transmission Date: 20090109
  Serious: No
  Sender: FDA-Public Use
  Company Number: US-BRISTOL-MYERS SQUIBB COMPANY-14016299

PATIENT
  Age: 52 Year
  Sex: Female
  Weight: 100 kg

DRUGS (4)
  1. ESTRACE [Suspect]
     Indication: HORMONE THERAPY
     Route: 065
     Dates: start: 19910101, end: 20071210
  2. ESTRACE [Suspect]
     Indication: MENOPAUSE
     Route: 065
     Dates: start: 19910101, end: 20071210
  3. SECTRAL [Concomitant]
  4. VALIUM [Concomitant]

REACTIONS (3)
  - AGITATION [None]
  - DIARRHOEA [None]
  - NERVOUSNESS [None]
